FAERS Safety Report 8430100-0 (Version None)
Quarter: 2012Q2

REPORT INFORMATION
  Report Type: 
  Country: None (occurrence: None)
  Receive Date: 20120612
  Receipt Date: 20120604
  Transmission Date: 20120825
  Serious: Yes (Other)
  Sender: FDA-Public Use
  Company Number: US-US-EMD SERONO, INC.-7027473

PATIENT
  Sex: Female
  Weight: 64 kg

DRUGS (7)
  1. ACETAMINOPHEN [Concomitant]
     Indication: PREMEDICATION
  2. VITAMIN D [Concomitant]
     Indication: VITAMIN D DEFICIENCY
  3. CALCIUM SUPPLEMENTS [Concomitant]
     Indication: VITAMIN SUPPLEMENTATION
  4. IBUPROFEN [Concomitant]
     Indication: PREMEDICATION
  5. REBIF [Suspect]
     Indication: MULTIPLE SCLEROSIS
     Dates: start: 20101007
  6. REBIF [Suspect]
     Route: 058
     Dates: start: 20100101
  7. TRI-SPRINTEC [Concomitant]
     Indication: CONTRACEPTION

REACTIONS (16)
  - STRESS [None]
  - PAIN IN EXTREMITY [None]
  - INFLUENZA LIKE ILLNESS [None]
  - VOMITING [None]
  - HYPOAESTHESIA [None]
  - PARAESTHESIA [None]
  - HEPATIC ENZYME INCREASED [None]
  - EYE HAEMORRHAGE [None]
  - INJECTION SITE PAIN [None]
  - BLOOD BLISTER [None]
  - OPTIC NERVE DISORDER [None]
  - NAUSEA [None]
  - INJECTION SITE MASS [None]
  - INJECTION SITE PRURITUS [None]
  - FATIGUE [None]
  - INJECTION SITE ERYTHEMA [None]
